FAERS Safety Report 20264167 (Version 1)
Quarter: 2021Q4

REPORT INFORMATION
  Report Type: Report from Study
  Country: HU (occurrence: HU)
  Receive Date: 20211231
  Receipt Date: 20211231
  Transmission Date: 20220303
  Serious: Yes (Death)
  Sender: FDA-Public Use
  Company Number: HU-ABBVIE-21K-076-4218116-00

PATIENT
  Sex: Female

DRUGS (9)
  1. CARBIDOPA\LEVODOPA [Suspect]
     Active Substance: CARBIDOPA\LEVODOPA
     Indication: Parkinson^s disease
     Dosage: MORNING DOSE: 5.0 ML; CONTINUOUS DOSE: 1.0 ML/HOUR; EXTRA DOSE: 1.5 ML
     Route: 050
     Dates: start: 20140603
  2. CARBIDOPA\LEVODOPA [Suspect]
     Active Substance: CARBIDOPA\LEVODOPA
  3. METFORMIN HYDROCHLORIDE [Concomitant]
     Active Substance: METFORMIN HYDROCHLORIDE
     Indication: Diabetes mellitus
     Dosage: 500 MG AT MORNING; 500 MG AT NOON
     Route: 048
  4. ASPIRIN [Concomitant]
     Active Substance: ASPIRIN
     Indication: Prophylaxis
     Dosage: 1 TABLET IN THE MORNING
     Route: 048
  5. SPIRONOLACTONE [Concomitant]
     Active Substance: SPIRONOLACTONE
     Indication: Product used for unknown indication
     Dosage: 1 TABLET IN THE MORNING
     Route: 048
  6. NEBIVOLOL [Concomitant]
     Active Substance: NEBIVOLOL
     Indication: Hypertension
     Dosage: 5 MG IN THE MORNING
     Route: 048
  7. ALPRAZOLAM [Concomitant]
     Active Substance: ALPRAZOLAM
     Indication: Product used for unknown indication
     Dosage: MORNING: 0.25 MG; AT NOON: 0.25 MG; EVENING: 0.5 MG
     Route: 048
  8. NOACID [Concomitant]
     Indication: Hyperchlorhydria
     Dosage: 1 TABLET IN THE EVENING
     Route: 048
  9. QUETIAPINE FUMARATE [Concomitant]
     Active Substance: QUETIAPINE FUMARATE
     Indication: Antidepressant therapy
     Dosage: 25 MG AT THE EVENING
     Route: 048
     Dates: start: 201605

REACTIONS (2)
  - General physical health deterioration [Fatal]
  - Depression [Unknown]

NARRATIVE: CASE EVENT DATE: 20160101
